FAERS Safety Report 6237963-8 (Version None)
Quarter: 2009Q2

REPORT INFORMATION
  Report Type: 
  Country: None (occurrence: None)
  Receive Date: 20090622
  Receipt Date: 20090616
  Transmission Date: 20091009
  Serious: No
  Sender: FDA-Public Use
  Company Number: US-B.I. PHARMACEUTICALS,INC./RIDGEFIELD-2009-BP-07377BP

PATIENT
  Sex: Male

DRUGS (2)
  1. SPIRIVA [Suspect]
     Indication: EMPHYSEMA
     Route: 055
     Dates: start: 20081101, end: 20090501
  2. COMBIVENT [Concomitant]
     Indication: EMPHYSEMA
     Route: 055
     Dates: start: 20040101

REACTIONS (1)
  - THERAPEUTIC RESPONSE DECREASED [None]
